FAERS Safety Report 8023942-7 (Version None)
Quarter: 2012Q1

REPORT INFORMATION
  Report Type: 
  Country: None (occurrence: None)
  Receive Date: 20120105
  Receipt Date: 20120102
  Transmission Date: 20120608
  Serious: Yes (Hospitalization, Other)
  Sender: FDA-Public Use
  Company Number: FR-PFIZER INC-2011216520

PATIENT
  Age: 37 Year
  Sex: Female
  Weight: 47 kg

DRUGS (2)
  1. LYRICA [Suspect]
     Dosage: 200 MG, 3X/DAY
  2. LYRICA [Suspect]
     Dosage: 300 MG, 2X/DAY

REACTIONS (4)
  - SUBILEUS [None]
  - CONSTIPATION [None]
  - ABDOMINAL PAIN [None]
  - HYPONATRAEMIA [None]
